FAERS Safety Report 6566674-4 (Version None)
Quarter: 2010Q1

REPORT INFORMATION
  Report Type: 
  Country: None (occurrence: None)
  Receive Date: 20100129
  Receipt Date: 20090814
  Transmission Date: 20100710
  Serious: Yes (Hospitalization)
  Sender: FDA-Public Use
  Company Number: 2009BH012782

PATIENT
  Age: 60 Year
  Sex: Male

DRUGS (23)
  1. DIANEAL [Suspect]
     Indication: PERITONEAL DIALYSIS
     Dosage: 8 L; IP
     Route: 033
     Dates: start: 20090701, end: 20090801
  2. ADVAIR DISKUS 100/50 [Concomitant]
  3. ALBUTEROL [Concomitant]
  4. AMIKACIN [Concomitant]
  5. ARIPIPRAZOLE [Concomitant]
  6. ASCORBIC ACID [Concomitant]
  7. ASPIRIN [Concomitant]
  8. NEBIVOLOL [Concomitant]
  9. CLOPIDOGREL BISULFATE [Concomitant]
  10. CYMBALTA [Concomitant]
  11. DIALYVITE [Concomitant]
  12. AMLODIPINE W/VALSARTAN [Concomitant]
  13. EZETEMIBE/SIMVASTATIN [Concomitant]
  14. FERROUS SULFATE TAB [Concomitant]
  15. FISH OIL [Concomitant]
  16. FOLIC ACID [Concomitant]
  17. LEVEMIR [Concomitant]
  18. RENAGAL [Concomitant]
  19. SPIRIVA [Concomitant]
  20. TEKTURNA [Concomitant]
  21. VITAMIN B COMPLEX CAP [Concomitant]
  22. DARBEPOETIN ALFA [Concomitant]
  23. FERRIC SODIUM GLUCONATE COMPLEX [Concomitant]

REACTIONS (3)
  - DECREASED APPETITE [None]
  - NAUSEA [None]
  - PERITONITIS BACTERIAL [None]
